FAERS Safety Report 8031183-2 (Version None)
Quarter: 2012Q1

REPORT INFORMATION
  Report Type: 
  Country: None (occurrence: None)
  Receive Date: 20120109
  Receipt Date: 20120103
  Transmission Date: 20120608
  Serious: Yes (Hospitalization)
  Sender: FDA-Public Use
  Company Number: FR-BAYER-2012-001058

PATIENT
  Age: 79 Year
  Sex: Male

DRUGS (6)
  1. CEFTAZIDIME SODIUM [Suspect]
     Indication: OSTEITIS
     Dosage: UNK
     Route: 042
     Dates: start: 20111021, end: 20111024
  2. TARKA [Concomitant]
     Indication: HYPERTENSION
     Dosage: 1 DF, QD
     Route: 048
  3. DIGOXIN [Concomitant]
     Indication: ARRHYTHMIA
     Dosage: 1 DF, QD
     Route: 048
  4. LATANOPROST [Concomitant]
     Indication: GLAUCOMA
     Dosage: 1 GBQ, QD
     Route: 047
  5. CIPROFLOXACIN [Suspect]
     Indication: OSTEITIS
     Dosage: UNK
     Route: 048
     Dates: start: 20111021, end: 20111117
  6. LANTUS [Concomitant]
     Indication: DIABETES MELLITUS
     Route: 058

REACTIONS (1)
  - TOXIC SKIN ERUPTION [None]
